FAERS Safety Report 6604022-1 (Version None)
Quarter: 2010Q1

REPORT INFORMATION
  Report Type: 
  Country: None (occurrence: None)
  Receive Date: 20100226
  Receipt Date: 20090416
  Transmission Date: 20100710
  Serious: No
  Sender: FDA-Public Use
  Company Number: A0779202A

PATIENT
  Age: 63 Year
  Sex: Female

DRUGS (2)
  1. LAMICTAL CD [Suspect]
     Indication: BIPOLAR DISORDER
     Dosage: 50MG PER DAY
     Route: 048
     Dates: start: 20081202
  2. TRAZODONE HCL [Concomitant]

REACTIONS (7)
  - BLADDER DISCOMFORT [None]
  - BLADDER PROLAPSE [None]
  - CRYING [None]
  - CYSTITIS [None]
  - DEPRESSION [None]
  - MICTURITION URGENCY [None]
  - RASH [None]
